FAERS Safety Report 5451898-X (Version None)
Quarter: 2007Q3

REPORT INFORMATION
  Report Type: 
  Country: None (occurrence: None)
  Receive Date: 20070912
  Receipt Date: 20070828
  Transmission Date: 20080115
  Serious: Yes (Hospitalization)
  Sender: FDA-Public Use
  Company Number: 2007EU001917

PATIENT
  Sex: Male

DRUGS (3)
  1. PROGRAF [Suspect]
     Dosage: D, TRANSPLACENTAL
     Route: 064
  2. IMURAN [Suspect]
     Dosage: 50 MG, IUD/QD, TRANSPLACENTAL
     Route: 064
  3. CORTANGYL (PREDNISONE) [Suspect]
     Dosage: 5 MG, UID/QD, TRANSPLACENTAL
     Route: 064

REACTIONS (5)
  - CAESAREAN SECTION [None]
  - DEHYDRATION [None]
  - DRUG EXPOSURE DURING PREGNANCY [None]
  - RENAL FAILURE [None]
  - RENAL HYPOPLASIA [None]
